FAERS Safety Report 10523528 (Version 3)
Quarter: 2015Q2

REPORT INFORMATION
  Report Type: Report from Study
  Country: GB (occurrence: GB)
  Receive Date: 20141017
  Receipt Date: 20150527
  Transmission Date: 20150821
  Serious: Yes (Hospitalization)
  Sender: FDA-Public Use
  Company Number: GB-MERCK-1410GBR005632

PATIENT
  Sex: Female

DRUGS (5)
  1. DEXAMETHASONE. [Suspect]
     Active Substance: DEXAMETHASONE
     Indication: PLASMA CELL MYELOMA RECURRENT
     Dosage: DAILY DOSE: 20 MG DAYS 1,2,4,5,8,9,11,12
     Route: 048
     Dates: start: 20140930, end: 20141230
  2. BORTEZOMIB [Suspect]
     Active Substance: BORTEZOMIB
     Indication: PLASMA CELL MYELOMA RECURRENT
     Dosage: DAILY DOSE 1.3 MG/M2 DAYS 1,4,8,11
     Route: 058
     Dates: start: 20140930, end: 20141229
  3. DEXAMETHASONE. [Suspect]
     Active Substance: DEXAMETHASONE
     Route: 048
  4. POMALIDOMIDE [Suspect]
     Active Substance: POMALIDOMIDE
  5. VORINOSTAT [Suspect]
     Active Substance: VORINOSTAT
     Indication: PLASMA CELL MYELOMA RECURRENT
     Dosage: DAILY DOSE 400 MG DAYS 1-4, 8-11, 15-18
     Route: 048
     Dates: start: 20140930, end: 20150102

REACTIONS (2)
  - Diarrhoea [Recovered/Resolved]
  - Lower respiratory tract infection [Recovered/Resolved]

NARRATIVE: CASE EVENT DATE: 20141004
